FAERS Safety Report 18579608 (Version 1)
Quarter: 2020Q4

REPORT INFORMATION
  Report Type: Spontaneous
  Country: US (occurrence: US)
  Receive Date: 20201204
  Receipt Date: 20201204
  Transmission Date: 20210114
  Serious: No
  Sender: FDA-Public Use
  Company Number: US-SUNOVION-2020SUN003502

PATIENT
  Age: 62 Year
  Sex: Female

DRUGS (3)
  1. LATUDA [Suspect]
     Active Substance: LURASIDONE HYDROCHLORIDE
     Dosage: 60 MG, QD
     Route: 048
     Dates: start: 202011
  2. LITHIUM. [Suspect]
     Active Substance: LITHIUM
     Dosage: 900 MG
  3. LITHIUM. [Suspect]
     Active Substance: LITHIUM
     Dosage: 1200MG-1500MG

REACTIONS (1)
  - Feeling abnormal [Unknown]
